FAERS Safety Report 9562544 (Version 1)
Quarter: 2013Q3

REPORT INFORMATION
  Report Type: Spontaneous
  Country: US (occurrence: None)
  Receive Date: 20130926
  Receipt Date: 20130926
  Transmission Date: 20140515
  Serious: Yes (Other)
  Sender: FDA-Public Use
  Company Number: None

PATIENT
  Age: 54 Year
  Sex: Male

DRUGS (9)
  1. XTANDI [Suspect]
     Indication: PROSTATE CANCER
     Route: 048
     Dates: start: 20121221
  2. CELEBREX [Concomitant]
  3. MORPHINE SULF [Concomitant]
  4. HYDROCODONE/ACETAMINOPHEN [Concomitant]
  5. CLONAZEPAM [Concomitant]
  6. ZOLPIDEM [Concomitant]
  7. LEVOTHYROXINE [Concomitant]
  8. DEXAMETHASONE [Concomitant]
  9. CELEBREX [Concomitant]

REACTIONS (2)
  - Hypoaesthesia [None]
  - Myalgia [None]
